FAERS Safety Report 5880172-2 (Version None)
Quarter: 2008Q3

REPORT INFORMATION
  Report Type: 
  Country: None (occurrence: None)
  Receive Date: 20080912
  Receipt Date: 20080902
  Transmission Date: 20090109
  Serious: Yes (Disabling, Other)
  Sender: FDA-Public Use
  Company Number: US-PFIZER INC-2008073807

PATIENT
  Sex: Female
  Weight: 68 kg

DRUGS (5)
  1. GEODON [Suspect]
     Indication: BIPOLAR DISORDER
     Route: 048
     Dates: start: 20060101
  2. GEODON [Suspect]
     Indication: DEPRESSION
  3. DEPAKOTE [Suspect]
  4. WELLBUTRIN [Suspect]
  5. DEXTROAMPHETAMINE [Concomitant]

REACTIONS (6)
  - ASTHENIA [None]
  - DISABILITY [None]
  - FATIGUE [None]
  - LIVER FUNCTION TEST ABNORMAL [None]
  - LIVER INJURY [None]
  - WEIGHT INCREASED [None]
